FAERS Safety Report 19457251 (Version 3)
Quarter: 2021Q3

REPORT INFORMATION
  Report Type: Other
  Country: GB (occurrence: GB)
  Receive Date: 20210624
  Receipt Date: 20210921
  Transmission Date: 20211014
  Serious: Yes (Life-Threatening, Hospitalization, Other)
  Sender: FDA-Public Use
  Company Number: GB-STRIDES ARCOLAB LIMITED-2020SP010916

PATIENT
  Age: 53 Year
  Sex: Female

DRUGS (3)
  1. TACROLIMUS. [Suspect]
     Active Substance: TACROLIMUS
     Indication: IMMUNOSUPPRESSION
     Dosage: 1 MILLIGRAM, BID (VARIABLE DOSING)
     Route: 048
     Dates: start: 20171108
  2. MYCOPHENOLATE MOFETIL. [Suspect]
     Active Substance: MYCOPHENOLATE MOFETIL
     Indication: IMMUNOSUPPRESSION
     Dosage: UNK
     Route: 065
  3. PREDNISOLONE. [Suspect]
     Active Substance: PREDNISOLONE
     Indication: IMMUNOSUPPRESSION
     Dosage: UNK
     Route: 065

REACTIONS (10)
  - Aortic aneurysm [Unknown]
  - Disseminated trichosporonosis [Recovered/Resolved]
  - Condition aggravated [Recovered/Resolved]
  - Skin necrosis [Recovered/Resolved]
  - Skin plaque [Unknown]
  - Skin ulcer [Recovered/Resolved]
  - Metastases to meninges [Unknown]
  - Skin mass [Recovered/Resolved]
  - Endophthalmitis [Unknown]
  - Fungal skin infection [Recovered/Resolved]

NARRATIVE: CASE EVENT DATE: 201903
